FAERS Safety Report 19903689 (Version 1)
Quarter: 2021Q4

REPORT INFORMATION
  Report Type: Spontaneous
  Country: US (occurrence: US)
  Receive Date: 20211001
  Receipt Date: 20211001
  Transmission Date: 20220303
  Serious: No
  Sender: FDA-Public Use
  Company Number: US-GLAXOSMITHKLINE-US2021202121

PATIENT
  Age: 66 Year
  Sex: Female

DRUGS (2)
  1. TRELEGY ELLIPTA [Suspect]
     Active Substance: FLUTICASONE FUROATE\UMECLIDINIUM BROMIDE\VILANTEROL TRIFENATATE
     Indication: Chronic obstructive pulmonary disease
     Dosage: 100MCG/62.5MCG/25MCG ONCE PER DAY
     Route: 055
     Dates: start: 20190901
  2. FLONASE SPRAY [Concomitant]
     Indication: Hypersensitivity
     Dosage: UNK UNK, BID
     Dates: end: 20210826

REACTIONS (3)
  - Nasal polyps [Not Recovered/Not Resolved]
  - Dyspnoea [Unknown]
  - Sinonasal obstruction [Not Recovered/Not Resolved]

NARRATIVE: CASE EVENT DATE: 20200101
